FAERS Safety Report 18253177 (Version 2)
Quarter: 2020Q3

REPORT INFORMATION
  Report Type: Report from Study
  Country: None (occurrence: US)
  Receive Date: 20200910
  Receipt Date: 20200912
  Transmission Date: 20201103
  Serious: Yes (Death)
  Sender: FDA-Public Use
  Company Number: US-ABBVIE-20K-163-3559950-00

PATIENT
  Age: 75 Year
  Sex: Male
  Weight: 62.2 kg

DRUGS (2)
  1. DUOPA [Suspect]
     Active Substance: CARBIDOPA\LEVODOPA
     Indication: PRODUCT USED FOR UNKNOWN INDICATION
     Dosage: 4.63 MG/ML 20 MG/ML
     Route: 050
     Dates: end: 20200830
  2. DUOPA [Suspect]
     Active Substance: CARBIDOPA\LEVODOPA

REACTIONS (5)
  - Parkinson^s disease [Fatal]
  - Malaise [Fatal]
  - Hypersomnia [Fatal]
  - Weight decreased [Fatal]
  - Decreased appetite [Fatal]

NARRATIVE: CASE EVENT DATE: 202008
